FAERS Safety Report 7705908-7 (Version None)
Quarter: 2011Q3

REPORT INFORMATION
  Report Type: 
  Country: None (occurrence: None)
  Receive Date: 20110824
  Receipt Date: 20110818
  Transmission Date: 20111222
  Serious: Yes (Death, Other)
  Sender: FDA-Public Use
  Company Number: KR-GENZYME-FLUD-1001351

PATIENT

DRUGS (9)
  1. FLUDARA [Suspect]
     Indication: BONE MARROW CONDITIONING REGIMEN
     Dosage: 30 MG/M2, FROM DAYS -5 TO -1
     Route: 065
  2. FLUDARA [Suspect]
     Indication: NEUROBLASTOMA
  3. TRIMETHOPRIM + SULFAMETHOXAZOLE [Concomitant]
     Indication: INFECTION PROPHYLAXIS
     Dosage: FROM ENGRAFTMENT TO DAY 180
     Route: 065
  4. CYCLOSPORINE [Concomitant]
     Indication: PROPHYLAXIS AGAINST GRAFT VERSUS HOST DISEASE
     Dosage: FROM DAY -1
     Route: 065
  5. ACYCLOVIR [Concomitant]
     Indication: INFECTION PROPHYLAXIS
     Dosage: BY DAY 30
     Route: 065
  6. FLUCONAZOLE [Concomitant]
     Indication: INFECTION PROPHYLAXIS
     Dosage: UNTIL HOSPITAL DISCHARGE
     Route: 065
  7. IMMUNE GLOBULIN NOS [Concomitant]
     Indication: PRODUCT USED FOR UNKNOWN INDICATION
     Dosage: WEEKLY FOR FIRST 3 MONTHS
     Route: 042
  8. CYCLOPHOSPHAMIDE [Suspect]
     Indication: BONE MARROW CONDITIONING REGIMEN
     Dosage: 60 MG/KG, ON DAYS -7 AND -6
     Route: 065
  9. CYCLOPHOSPHAMIDE [Suspect]
     Indication: NEUROBLASTOMA

REACTIONS (3)
  - CHRONIC GRAFT VERSUS HOST DISEASE [None]
  - NEUROBLASTOMA [None]
  - ACUTE GRAFT VERSUS HOST DISEASE [None]
